FAERS Safety Report 17953175 (Version 1)
Quarter: 2020Q2

REPORT INFORMATION
  Report Type: Spontaneous
  Country: DE (occurrence: DE)
  Receive Date: 20200627
  Receipt Date: 20200627
  Transmission Date: 20200714
  Serious: Yes (Death, Other)
  Sender: FDA-Public Use
  Company Number: NVSC2020DE160611

PATIENT
  Age: 16 Year
  Sex: Female

DRUGS (6)
  1. CERITINIB [Suspect]
     Active Substance: CERITINIB
     Dosage: 450 MILLIGRAM, QD
     Route: 065
  2. DASATINIB. [Suspect]
     Active Substance: DASATINIB
     Indication: OSTEOSARCOMA
     Dosage: 100 MG, QD (TAKEN EVERY EVENING)
     Route: 048
  3. DASATINIB. [Suspect]
     Active Substance: DASATINIB
     Dosage: 100 MG, PER DAY
     Route: 048
  4. CERITINIB [Suspect]
     Active Substance: CERITINIB
     Indication: OSTEOSARCOMA
     Dosage: 300 MG, QD (TABLET) (TAKEN EVERY MORNING; DOSE INCREASED WEEKLY (INITIAL DOSE 150MG))
     Route: 048
  5. CERITINIB [Suspect]
     Active Substance: CERITINIB
     Dosage: 150 MG, QD (TABLET)
     Route: 065
  6. DASATINIB. [Suspect]
     Active Substance: DASATINIB
     Dosage: 80 MG, QD 9IN WEEK FIVE OF THERAPY)
     Route: 065

REACTIONS (10)
  - Thrombocytopenia [Recovered/Resolved]
  - Tumour necrosis [Unknown]
  - Drug interaction [Unknown]
  - Rash [Fatal]
  - Intentional product use issue [Recovered/Resolved]
  - Diarrhoea [Fatal]
  - Condition aggravated [Fatal]
  - Leukopenia [Recovered/Resolved]
  - Blood lactate dehydrogenase increased [Unknown]
  - Off label use [Fatal]
